FAERS Safety Report 9124714 (Version 2)
Quarter: 2013Q1

REPORT INFORMATION
  Report Type: Spontaneous
  Country: BR (occurrence: BR)
  Receive Date: 20130227
  Receipt Date: 20130228
  Transmission Date: 20140127
  Serious: Yes (Other)
  Sender: FDA-Public Use
  Company Number: BR-BAYER-2012-131536

PATIENT
  Age: 42 Year
  Sex: Female

DRUGS (2)
  1. QLAIRA [Suspect]
     Dosage: UNK
     Route: 048
     Dates: start: 2012
  2. ANTIBIOTICS [Interacting]
     Dosage: UNK
     Route: 048
     Dates: start: 20130119, end: 20130125

REACTIONS (5)
  - Metrorrhagia [Recovered/Resolved]
  - Menorrhagia [Recovered/Resolved]
  - Urinary tract infection [None]
  - Menstruation delayed [Not Recovered/Not Resolved]
  - Inappropriate schedule of drug administration [None]
